FAERS Safety Report 5750071-5 (Version None)
Quarter: 2008Q2

REPORT INFORMATION
  Report Type: 
  Country: None (occurrence: None)
  Receive Date: 20080527
  Receipt Date: 20080515
  Transmission Date: 20081010
  Serious: Yes (Life-Threatening, Other)
  Sender: FDA-Public Use
  Company Number: JP-PFIZER INC-2008016108

PATIENT
  Sex: Female
  Weight: 51 kg

DRUGS (1)
  1. AROMASIN [Suspect]
     Indication: BREAST CANCER
     Route: 048
     Dates: start: 20080121, end: 20080214

REACTIONS (7)
  - ANAEMIA [None]
  - DISEASE PROGRESSION [None]
  - EXTRADURAL HAEMATOMA [None]
  - HAEMORRHAGE SUBCUTANEOUS [None]
  - METASTASIS [None]
  - SPINAL CORD DISORDER [None]
  - VASCULAR PURPURA [None]
